FAERS Safety Report 19584903 (Version 2)
Quarter: 2021Q3

REPORT INFORMATION
  Report Type: Report from Study
  Country: KR (occurrence: KR)
  Receive Date: 20210720
  Receipt Date: 20210809
  Transmission Date: 20211014
  Serious: Yes (Death, Hospitalization)
  Sender: FDA-Public Use
  Company Number: KR-CELGENEUS-KOR-20210605485

PATIENT
  Age: 48 Year
  Sex: Male
  Weight: 74.7 kg

DRUGS (24)
  1. DEXAMETHASONE. [Suspect]
     Active Substance: DEXAMETHASONE
     Indication: PLASMA CELL MYELOMA
     Route: 065
     Dates: start: 20200813, end: 20210615
  2. ULTRACET [Concomitant]
     Active Substance: ACETAMINOPHEN\TRAMADOL HYDROCHLORIDE
     Indication: PAIN
     Dosage: 1 T
     Route: 048
     Dates: start: 20200511
  3. ULTRACET [Concomitant]
     Active Substance: ACETAMINOPHEN\TRAMADOL HYDROCHLORIDE
     Indication: SEPTIC SHOCK
  4. HYDROCORTISONE. [Concomitant]
     Active Substance: HYDROCORTISONE
     Indication: INFECTION
     Dosage: 15 MILLIGRAM
     Route: 048
     Dates: start: 20190313
  5. RENALMIN [Concomitant]
     Indication: END STAGE RENAL DISEASE
     Dosage: 1 T
     Route: 048
     Dates: start: 20180323
  6. IR CODON [Concomitant]
     Active Substance: OXYCODONE HYDROCHLORIDE
     Indication: NEUROPATHY PERIPHERAL
     Dosage: 15 MILLIGRAM
     Route: 048
     Dates: start: 20110911
  7. MACPERAN [Concomitant]
     Active Substance: METOCLOPRAMIDE HYDROCHLORIDE
     Indication: SEPTIC SHOCK
  8. PYRIDOXINE [Concomitant]
     Active Substance: PYRIDOXINE
     Indication: NAUSEA
     Dosage: 50 MILLIGRAM
     Route: 048
     Dates: start: 20201008
  9. POMALIDOMIDE [Suspect]
     Active Substance: POMALIDOMIDE
     Indication: PLASMA CELL MYELOMA
     Route: 048
     Dates: start: 20200813, end: 20210615
  10. BONALING?A [Concomitant]
     Active Substance: DIMENHYDRINATE
     Indication: NAUSEA
     Dosage: 100 MILLIGRAM
     Route: 048
     Dates: start: 20200910
  11. BONALING?A [Concomitant]
     Active Substance: DIMENHYDRINATE
     Indication: SEPTIC SHOCK
  12. PENIRAMIN [Concomitant]
     Indication: PRURITUS
     Dosage: 2 MILLIGRAM
     Route: 048
     Dates: start: 20201008, end: 20210616
  13. ACLOVA [Concomitant]
     Indication: INFECTION
     Dosage: 200 MILLIGRAM
     Route: 048
     Dates: start: 20180814
  14. CALCIUM CARBONATE. [Concomitant]
     Active Substance: CALCIUM CARBONATE
     Indication: OSTEOPOROSIS
     Dosage: 1500 MILLIGRAM
     Route: 048
     Dates: start: 20190526
  15. ONSERAN [Concomitant]
     Indication: ANTIEMETIC SUPPORTIVE CARE
     Dosage: 16 MILLIGRAM
     Route: 048
     Dates: start: 20190528
  16. SYNTHYROXINE [Concomitant]
     Active Substance: LEVOTHYROXINE SODIUM
     Indication: END STAGE RENAL DISEASE
     Dosage: 100 MICROGRAM
     Route: 048
     Dates: start: 20180110
  17. CYCLOPHOSPHAMIDE. [Suspect]
     Active Substance: CYCLOPHOSPHAMIDE
     Indication: PLASMA CELL MYELOMA
     Route: 065
     Dates: start: 20200813, end: 20210615
  18. NEXIUM [Concomitant]
     Active Substance: ESOMEPRAZOLE MAGNESIUM
     Indication: GASTROENTERITIS
     Dosage: 20 MILLIGRAM
     Route: 048
     Dates: start: 20180313
  19. MACPERAN [Concomitant]
     Active Substance: METOCLOPRAMIDE HYDROCHLORIDE
     Indication: NAUSEA
     Dosage: 15 MILLIGRAM
     Route: 048
     Dates: start: 20200827
  20. JURNISTA SR [Concomitant]
     Indication: SEPTIC SHOCK
  21. PYRIDOXINE [Concomitant]
     Active Substance: PYRIDOXINE
     Indication: SEPTIC SHOCK
  22. JURNISTA SR [Concomitant]
     Indication: NAUSEA
     Dosage: 8 MILLIGRAM
     Route: 048
     Dates: start: 20200910
  23. PENIRAMIN [Concomitant]
     Indication: SEPTIC SHOCK
  24. ASPIRIN PROTECT [Concomitant]
     Active Substance: ASPIRIN
     Indication: CARDIAC FAILURE
     Dosage: 100 MILLIGRAM
     Route: 048
     Dates: start: 20170827

REACTIONS (1)
  - Septic shock [Fatal]

NARRATIVE: CASE EVENT DATE: 20210615
